FAERS Safety Report 9063942 (Version 2)
Quarter: 2013Q1

REPORT INFORMATION
  Report Type: Not Available
  Country: FR (occurrence: FR)
  Receive Date: 20130213
  Receipt Date: 20130228
  Transmission Date: 20140127
  Serious: Yes (Hospitalization)
  Sender: FDA-Public Use
  Company Number: FR-NAPPMUNDI-GBR-2013-0013132

PATIENT
  Age: 77 None
  Sex: Female

DRUGS (5)
  1. OXYNORM [Suspect]
     Indication: PRODUCT USED FOR UNKNOWN INDICATION
     Dosage: 5 MG, DAILY
     Route: 048
     Dates: start: 20121002
  2. ROCEPHINE [Suspect]
     Indication: ARTHRITIS INFECTIVE
     Dosage: 2 G, Q48H
     Route: 042
     Dates: start: 20121004, end: 20130123
  3. COUMADINE [Suspect]
     Indication: PRODUCT USED FOR UNKNOWN INDICATION
     Dosage: 6 MG, DAILY
     Route: 048
     Dates: start: 20121110
  4. ENALAPRIL [Concomitant]
     Dosage: UNK
     Dates: start: 2010
  5. CRESTOR [Concomitant]
     Dosage: UNK
     Dates: start: 2010

REACTIONS (1)
  - Cholelithiasis [Recovered/Resolved]
